FAERS Safety Report 4862589-8 (Version None)
Quarter: 2005Q4

REPORT INFORMATION
  Report Type: 
  Country: None (occurrence: None)
  Receive Date: 20051221
  Receipt Date: 20050406
  Transmission Date: 20060501
  Serious: Yes (Disabling)
  Sender: FDA-Public Use
  Company Number: FR-SOLVAY-00205001168

PATIENT
  Age: 79 Year
  Sex: Female
  Weight: 83 kg

DRUGS (4)
  1. ISOPTIN [Concomitant]
     Indication: ILL-DEFINED DISORDER
     Dosage: DAILY DOSE:  UNKNOWN
     Route: 065
     Dates: start: 19810101
  2. UTROGESTAN [Suspect]
     Indication: HORMONE REPLACEMENT THERAPY
     Dosage: DAILY DOSE:  UNKNOWN
     Route: 048
     Dates: start: 19810101, end: 20010615
  3. TRANDATE [Concomitant]
     Dosage: DAILY DOSE:  UNKNOWN
     Route: 048
  4. ESTROGEL [Suspect]
     Indication: HORMONE REPLACEMENT THERAPY
     Dosage: DAILY DOSE:  UNKNOWN
     Route: 062
     Dates: start: 19810101, end: 20010615

REACTIONS (2)
  - BLINDNESS [None]
  - RETINAL VEIN THROMBOSIS [None]
